FAERS Safety Report 11871136 (Version 1)
Quarter: 2015Q4

REPORT INFORMATION
  Report Type: Spontaneous
  Country: US (occurrence: None)
  Receive Date: 20151224
  Receipt Date: 20151224
  Transmission Date: 20160305
  Serious: No
  Sender: FDA-Public Use
  Company Number: None

PATIENT
  Age: 13 Year
  Sex: Male
  Weight: 59.42 kg

DRUGS (3)
  1. MIRVASO [Suspect]
     Active Substance: BRIMONIDINE TARTRATE
     Dosage: 1 PEA SIZE TO EACH AFFECTED?ONCE DAILY?APPLIED TO A SURFACE, USUALLY THE SKIN
     Route: 061
  2. OMEGA AND MULTI VITAMIN FOR ADULTS [Concomitant]
  3. FACE MOISTURIZER [Concomitant]

REACTIONS (2)
  - Drug ineffective [None]
  - Erythema [None]

NARRATIVE: CASE EVENT DATE: 20151222
